FAERS Safety Report 18673323 (Version 7)
Quarter: 2021Q2

REPORT INFORMATION
  Report Type: Other
  Country: US (occurrence: US)
  Receive Date: 20201228
  Receipt Date: 20210407
  Transmission Date: 20210717
  Serious: Yes (Hospitalization, Other)
  Sender: FDA-Public Use
  Company Number: US-ACORDA-ACO_167291_2020

PATIENT
  Age: 83 Year
  Sex: Female

DRUGS (5)
  1. GOCOVRI [Suspect]
     Active Substance: AMANTADINE
     Indication: DYSKINESIA
     Dosage: UNK
     Route: 065
  2. INBRIJA [Suspect]
     Active Substance: LEVODOPA
     Indication: PARKINSON^S DISEASE
     Dosage: 84 MILLIGRAM, PRN, NOT TO EXCEED 5 DOSES A DAY
     Dates: start: 20201207
  3. SYNTHROID [Concomitant]
     Active Substance: LEVOTHYROXINE SODIUM
     Indication: PRODUCT USED FOR UNKNOWN INDICATION
     Dosage: UNK
     Route: 065
  4. CARBIDOPA/LEVODOPA [Concomitant]
     Active Substance: CARBIDOPA\LEVODOPA
     Indication: PRODUCT USED FOR UNKNOWN INDICATION
     Dosage: UNK
     Route: 048
  5. INBRIJA [Suspect]
     Active Substance: LEVODOPA
     Indication: ON AND OFF PHENOMENON

REACTIONS (17)
  - Cerebrovascular accident [Unknown]
  - Intentional underdose [Unknown]
  - Weight decreased [Unknown]
  - Sneezing [Not Recovered/Not Resolved]
  - Feeling abnormal [Unknown]
  - Anosmia [Unknown]
  - Therapeutic product effect variable [Unknown]
  - Sleep disorder [Recovered/Resolved]
  - Ageusia [Unknown]
  - Mobility decreased [Unknown]
  - Musculoskeletal stiffness [Unknown]
  - Adverse event [Unknown]
  - Balance disorder [Unknown]
  - Cough [Not Recovered/Not Resolved]
  - Fall [Unknown]
  - Decreased appetite [Unknown]
  - Asthenia [Unknown]

NARRATIVE: CASE EVENT DATE: 20201210
